FAERS Safety Report 7980827-X (Version None)
Quarter: 2011Q4

REPORT INFORMATION
  Report Type: 
  Country: None (occurrence: None)
  Receive Date: 20111214
  Receipt Date: 20111129
  Transmission Date: 20120403
  Serious: Yes (Death)
  Sender: FDA-Public Use
  Company Number: KR-ROCHE-1018188

PATIENT
  Age: 60 Year
  Sex: Male

DRUGS (2)
  1. OSELTAMIVIR [Suspect]
     Indication: H1N1 INFLUENZA
  2. OSELTAMIVIR [Suspect]

REACTIONS (2)
  - DRUG INEFFECTIVE [None]
  - DRUG RESISTANCE [None]
